FAERS Safety Report 20755601 (Version 2)
Quarter: 2022Q2

REPORT INFORMATION
  Report Type: Report from Study
  Country: DE (occurrence: DE)
  Receive Date: 20220427
  Receipt Date: 20220623
  Transmission Date: 20220721
  Serious: Yes (Other)
  Sender: FDA-Public Use
  Company Number: DE-BRISTOL-MYERS SQUIBB COMPANY-BMS-2020-022870

PATIENT
  Age: 84 Year
  Sex: Female

DRUGS (7)
  1. DASATINIB [Suspect]
     Active Substance: DASATINIB
     Indication: Chronic myeloid leukaemia
     Route: 065
  2. DASATINIB [Suspect]
     Active Substance: DASATINIB
     Dosage: 10-FEB-2020
     Route: 065
     Dates: end: 20200218
  3. DASATINIB [Suspect]
     Active Substance: DASATINIB
     Route: 065
     Dates: start: 20200210, end: 20200219
  4. HYDROXYUREA [Suspect]
     Active Substance: HYDROXYUREA
     Indication: Product used for unknown indication
     Route: 065
  5. HYDROXYUREA [Suspect]
     Active Substance: HYDROXYUREA
     Dosage: 20-FEB-2020
     Route: 065
     Dates: end: 20200707
  6. HYDROXYUREA [Suspect]
     Active Substance: HYDROXYUREA
     Dosage: 26-AUG-2020
     Route: 065
     Dates: end: 20200903
  7. ASPIRIN [Concomitant]
     Active Substance: ASPIRIN
     Indication: Product used for unknown indication
     Dosage: 100
     Route: 065

REACTIONS (6)
  - Drug ineffective [Unknown]
  - Nausea [Recovered/Resolved]
  - Cardiac disorder [Recovered/Resolved]
  - Lymphoedema [Unknown]
  - Vomiting [Unknown]
  - Diarrhoea [Unknown]

NARRATIVE: CASE EVENT DATE: 20200215
